FAERS Safety Report 10883309 (Version 2)
Quarter: 2015Q2

REPORT INFORMATION
  Report Type: Spontaneous
  Country: GB (occurrence: GB)
  Receive Date: 20150303
  Receipt Date: 20150427
  Transmission Date: 20150821
  Serious: Yes (Disabling, Other)
  Sender: FDA-Public Use
  Company Number: GB-009507513-1502GBR010936

PATIENT
  Sex: Male

DRUGS (1)
  1. PROSCAR [Suspect]
     Active Substance: FINASTERIDE
     Indication: ALOPECIA
     Dosage: 1.25 MG, QD
     Route: 048
     Dates: start: 201206, end: 201401

REACTIONS (24)
  - Pain [Not Recovered/Not Resolved]
  - Fatigue [Not Recovered/Not Resolved]
  - Testicular pain [Not Recovered/Not Resolved]
  - Rectal haemorrhage [Recovered/Resolved]
  - Disturbance in attention [Not Recovered/Not Resolved]
  - Semen analysis abnormal [Not Recovered/Not Resolved]
  - Vasodilatation [Not Recovered/Not Resolved]
  - Muscle twitching [Not Recovered/Not Resolved]
  - Insomnia [Not Recovered/Not Resolved]
  - Wrong technique in drug usage process [Unknown]
  - Adverse event [Unknown]
  - Quality of life decreased [Recovered/Resolved]
  - Arthralgia [Not Recovered/Not Resolved]
  - Drug administration error [Unknown]
  - Chest pain [Not Recovered/Not Resolved]
  - Cryptorchism [Not Recovered/Not Resolved]
  - Pollakiuria [Not Recovered/Not Resolved]
  - Hypotonia [Not Recovered/Not Resolved]
  - Blood testosterone decreased [Not Recovered/Not Resolved]
  - Groin pain [Not Recovered/Not Resolved]
  - Constipation [Recovered/Resolved]
  - Ejaculation failure [Not Recovered/Not Resolved]
  - Loss of libido [Not Recovered/Not Resolved]
  - Product quality issue [Unknown]

NARRATIVE: CASE EVENT DATE: 201206
